FAERS Safety Report 9534299 (Version 3)
Quarter: 2013Q4

REPORT INFORMATION
  Report Type: Report from Study
  Country: ES (occurrence: ES)
  Receive Date: 20130918
  Receipt Date: 20131009
  Transmission Date: 20140711
  Serious: Yes (Other)
  Sender: FDA-Public Use
  Company Number: ES-GLAXOSMITHKLINE-B0922613A

PATIENT
  Age: 62 Year
  Sex: Male
  Weight: 107 kg

DRUGS (5)
  1. DABRAFENIB [Suspect]
     Indication: METASTATIC MALIGNANT MELANOMA
     Dosage: 150MG TWICE PER DAY
     Route: 048
     Dates: start: 20130702, end: 20130830
  2. TRAMETINIB [Suspect]
     Indication: METASTATIC MALIGNANT MELANOMA
     Dosage: 2MG PER DAY
     Route: 048
     Dates: start: 20130702, end: 20130830
  3. EVIPLERA [Concomitant]
     Dosage: 150MG PER DAY
     Route: 048
  4. CLEXANE [Concomitant]
     Dosage: 150MG PER DAY
     Route: 058
  5. PREGABALIN [Concomitant]
     Dosage: 450MG PER DAY
     Route: 048

REACTIONS (1)
  - Hepatotoxicity [Recovering/Resolving]
